FAERS Safety Report 5672692-0 (Version None)
Quarter: 2008Q1

REPORT INFORMATION
  Report Type: 
  Country: None (occurrence: None)
  Receive Date: 20080319
  Receipt Date: 20071207
  Transmission Date: 20080703
  Serious: No
  Sender: FDA-Public Use
  Company Number: US-KINGPHARMUSA00001-K200701582

PATIENT

DRUGS (6)
  1. ALTACE [Suspect]
     Indication: PROPHYLAXIS
     Dosage: 10 MG, QD
     Route: 048
     Dates: start: 20050101
  2. ACTOS [Concomitant]
     Indication: DIABETES MELLITUS
  3. SIMVASTATIN [Concomitant]
     Indication: BLOOD CHOLESTEROL INCREASED
  4. DETROL LA /01350201/ [Concomitant]
     Indication: HYPERTONIC BLADDER
     Dosage: 4 MG, QD
     Route: 048
  5. ASPIRIN [Concomitant]
     Dosage: 81 MG, QD
     Route: 048
  6. VITAMIN B6 [Concomitant]
     Dosage: UNK, UNK

REACTIONS (2)
  - MUSCULAR WEAKNESS [None]
  - OEDEMA PERIPHERAL [None]
